FAERS Safety Report 8206355-4 (Version None)
Quarter: 2012Q1

REPORT INFORMATION
  Report Type: 
  Country: None (occurrence: None)
  Receive Date: 20120313
  Receipt Date: 20120302
  Transmission Date: 20120608
  Serious: Yes (Other)
  Sender: FDA-Public Use
  Company Number: CA-ROCHE-768950

PATIENT
  Sex: Male
  Weight: 120.2 kg

DRUGS (14)
  1. ACTEMRA [Suspect]
     Route: 042
     Dates: start: 20110203, end: 20110203
  2. METHOTREXATE [Concomitant]
  3. INFLIXIMAB [Concomitant]
  4. METFORMIN HCL [Concomitant]
  5. TRAMADOL HCL [Concomitant]
     Indication: PAIN
  6. HYDROXYCHLOROQUINE SULFATE [Concomitant]
  7. ACTEMRA [Suspect]
     Indication: RHEUMATOID ARTHRITIS
     Dosage: FORM: INFUSION
     Route: 042
     Dates: start: 20100917, end: 20100917
  8. RAMIPRIL [Concomitant]
     Indication: BLOOD PRESSURE
  9. DICLOFENAC SODIUM [Concomitant]
     Indication: ANTIINFLAMMATORY THERAPY
  10. CELEBREX [Concomitant]
  11. MINOCYCLINE HCL [Concomitant]
     Indication: PROPHYLAXIS
  12. ACTEMRA [Suspect]
     Route: 042
  13. MINOCYCLINE HCL [Concomitant]
     Indication: THERAPEUTIC PROCEDURE
  14. GLYBURIDE [Concomitant]

REACTIONS (6)
  - CHEST DISCOMFORT [None]
  - COUGH [None]
  - NEPHROLITHIASIS [None]
  - INFLUENZA LIKE ILLNESS [None]
  - FEELING HOT [None]
  - DYSPNOEA [None]
